FAERS Safety Report 7171527-7 (Version None)
Quarter: 2010Q4

REPORT INFORMATION
  Report Type: 
  Country: None (occurrence: None)
  Receive Date: 20101217
  Receipt Date: 20101207
  Transmission Date: 20110411
  Serious: Yes (Other)
  Sender: FDA-Public Use
  Company Number: US-MYLANLABS-2010S1016174

PATIENT
  Age: 38 Year
  Sex: Female
  Weight: 73.48 kg

DRUGS (4)
  1. PAROXETINE HCL [Suspect]
     Indication: DEPRESSION
     Route: 048
     Dates: start: 20090710, end: 20090814
  2. PAROXETINE HCL [Suspect]
     Indication: ANXIETY
     Route: 048
     Dates: start: 20090710, end: 20090814
  3. PAROXETINE HCL [Suspect]
     Indication: PANIC ATTACK
     Route: 048
     Dates: start: 20090710, end: 20090814
  4. ZYRTEC [Concomitant]
     Route: 048

REACTIONS (12)
  - ABDOMINAL PAIN UPPER [None]
  - CHEST PAIN [None]
  - DEHYDRATION [None]
  - DIARRHOEA [None]
  - HEART RATE INCREASED [None]
  - IRRITABLE BOWEL SYNDROME [None]
  - MALAISE [None]
  - MIGRAINE [None]
  - MYALGIA [None]
  - NAUSEA [None]
  - PALPITATIONS [None]
  - VOMITING [None]
